FAERS Safety Report 7491536-8 (Version None)
Quarter: 2011Q2

REPORT INFORMATION
  Report Type: 
  Country: None (occurrence: None)
  Receive Date: 20110519
  Receipt Date: 20110506
  Transmission Date: 20111010
  Serious: No
  Sender: FDA-Public Use
  Company Number: JP-ELI_LILLY_AND_COMPANY-JP201105003607

PATIENT
  Age: 23 Year
  Sex: Female

DRUGS (2)
  1. ZYPREXA [Suspect]
     Dosage: 20 MG, QD
     Route: 048
     Dates: start: 20110401, end: 20110506
  2. RISPERDAL [Concomitant]
     Dosage: 6 MG, QD

REACTIONS (1)
  - GRANULOCYTE COUNT DECREASED [None]
